FAERS Safety Report 22190999 (Version 2)
Quarter: 2023Q2

REPORT INFORMATION
  Report Type: Spontaneous
  Country: CN (occurrence: CN)
  Receive Date: 20230410
  Receipt Date: 20230421
  Transmission Date: 20230721
  Serious: Yes (Hospitalization, Other)
  Sender: FDA-Public Use
  Company Number: CN-SUN PHARMACEUTICAL INDUSTRIES LTD-2023R1-383784

PATIENT
  Age: 43 Year
  Sex: Female

DRUGS (3)
  1. GEMCITABINE [Suspect]
     Active Substance: GEMCITABINE
     Indication: Adenocarcinoma pancreas
     Dosage: 1000 MILLIGRAM/SQ. METER ON DAY 1 AND DAY 8 EVERY 3 WEEKS
     Route: 065
     Dates: start: 201905
  2. PACLITAXEL [Suspect]
     Active Substance: PACLITAXEL
     Indication: Adenocarcinoma pancreas
     Dosage: 125 MILLIGRAM/SQ. METER ON DAY 1 AND DAY 8 EVERY 3 WEEKS
     Route: 065
     Dates: start: 201905
  3. TORIPALIMAB [Suspect]
     Active Substance: TORIPALIMAB
     Indication: Adenocarcinoma pancreas
     Dosage: 240 MILLIGRAM ON DAY 1 EVERY 3 WEEKS
     Route: 065
     Dates: start: 201905

REACTIONS (2)
  - Immune-mediated encephalopathy [Recovered/Resolved]
  - Cardiotoxicity [Recovered/Resolved]
